FAERS Safety Report 8431541-8 (Version None)
Quarter: 2012Q2

REPORT INFORMATION
  Report Type: 
  Country: None (occurrence: None)
  Receive Date: 20120607
  Receipt Date: 20120607
  Transmission Date: 20120825
  Serious: Yes (Life-Threatening, Hospitalization, Disabling, Other)
  Sender: FDA-Public Use
  Company Number: None

PATIENT
  Sex: Female
  Weight: 87.9978 kg

DRUGS (8)
  1. DARVOCET [Concomitant]
  2. PAXIL [Concomitant]
  3. OMNICEF [Concomitant]
  4. BACTRIM DS [Suspect]
  5. ZOLOFT [Concomitant]
  6. CHANTIX [Concomitant]
  7. LEVAQUIN [Concomitant]
  8. SULFAMETHOXAZOLE AND TRIMETHOPRIM [Suspect]
     Indication: NASOPHARYNGITIS
     Dosage: 2 TB TWICE DAILY
     Dates: start: 20120319

REACTIONS (13)
  - HEADACHE [None]
  - HAEMATOCHEZIA [None]
  - RASH [None]
  - MUSCLE DISORDER [None]
  - CHEST PAIN [None]
  - NAUSEA [None]
  - TENDON DISORDER [None]
  - VOMITING [None]
  - TENDON PAIN [None]
  - DIPLEGIA [None]
  - PYREXIA [None]
  - PHARYNGEAL OEDEMA [None]
  - MOVEMENT DISORDER [None]
